FAERS Safety Report 6332751-6 (Version None)
Quarter: 2009Q3

REPORT INFORMATION
  Report Type: 
  Country: None (occurrence: None)
  Receive Date: 20090828
  Receipt Date: 20090818
  Transmission Date: 20100115
  Serious: Yes (Death, Hospitalization)
  Sender: FDA-Public Use
  Company Number: A0761178A

PATIENT
  Age: 58 Year
  Sex: Female
  Weight: 88.6 kg

DRUGS (1)
  1. AVANDIA [Suspect]
     Route: 048
     Dates: start: 19990101, end: 20060101

REACTIONS (1)
  - CARDIAC FAILURE CONGESTIVE [None]
